FAERS Safety Report 5473803-2 (Version None)
Quarter: 2007Q4

REPORT INFORMATION
  Report Type: 
  Country: None (occurrence: None)
  Receive Date: 20071001
  Receipt Date: 20070920
  Transmission Date: 20080405
  Serious: Yes (Other)
  Sender: FDA-Public Use
  Company Number: GB-PFIZER INC-2007072551

PATIENT
  Sex: Female
  Weight: 65 kg

DRUGS (3)
  1. ISTIN [Suspect]
     Indication: HYPERTENSION
     Route: 048
     Dates: start: 20070301, end: 20070801
  2. ISTIN [Suspect]
     Indication: CEREBROVASCULAR ACCIDENT
  3. LEVOTHYROXINE SODIUM [Concomitant]
     Dosage: DAILY DOSE:150MCG
     Route: 048

REACTIONS (6)
  - BLOOD CREATININE INCREASED [None]
  - BLOOD UREA INCREASED [None]
  - INFLAMMATION [None]
  - LETHARGY [None]
  - MALAISE [None]
  - RENAL FAILURE [None]
